FAERS Safety Report 13359000 (Version 2)
Quarter: 2017Q1

REPORT INFORMATION
  Report Type: Spontaneous
  Country: IL (occurrence: IL)
  Receive Date: 20170322
  Receipt Date: 20170327
  Transmission Date: 20170429
  Serious: Yes (Other)
  Sender: FDA-Public Use
  Company Number: IL-009507513-1703ISR007281

PATIENT
  Age: 25 Year
  Sex: Male

DRUGS (1)
  1. DIPROSPAN [Suspect]
     Active Substance: BETAMETHASONE DIPROPIONATE\BETAMETHASONE SODIUM PHOSPHATE
     Dosage: UNK
     Route: 014

REACTIONS (4)
  - Erythema [Unknown]
  - Pruritus [Unknown]
  - Dyspnoea [Unknown]
  - Paraesthesia [Unknown]
